FAERS Safety Report 6323597-3 (Version None)
Quarter: 2009Q3

REPORT INFORMATION
  Report Type: 
  Country: None (occurrence: None)
  Receive Date: 20090820
  Receipt Date: 20090803
  Transmission Date: 20100115
  Serious: Yes (Other)
  Sender: FDA-Public Use
  Company Number: JPI-P-008145

PATIENT
  Sex: Female

DRUGS (1)
  1. XYREM [Suspect]
     Indication: NARCOLEPSY
     Dosage: ORAL
     Route: 048

REACTIONS (3)
  - SCHIZOPHRENIA [None]
  - SUICIDE ATTEMPT [None]
  - WEIGHT DECREASED [None]
